FAERS Safety Report 8941419 (Version 1)
Quarter: 2012Q4

REPORT INFORMATION
  Report Type: 
  Country: US (occurrence: US)
  Receive Date: 20121203
  Receipt Date: 20121203
  Transmission Date: 20130627
  Serious: No
  Sender: FDA-Public Use
  Company Number: US-PFIZER INC-2012302181

PATIENT
  Sex: Female

DRUGS (2)
  1. LYRICA [Suspect]
     Indication: SHINGLES
     Dosage: 50 mg, daily
     Dates: start: 201209, end: 201209
  2. LYRICA [Suspect]
     Dosage: UNK
     Dates: start: 201209, end: 201209

REACTIONS (1)
  - Somnolence [Recovered/Resolved]
